FAERS Safety Report 25880942 (Version 1)
Quarter: 2025Q4

REPORT INFORMATION
  Report Type: Spontaneous
  Country: EU (occurrence: EU)
  Receive Date: 20251004
  Receipt Date: 20251004
  Transmission Date: 20260119
  Serious: Yes (Other)
  Sender: ACCORD
  Company Number: None

PATIENT
  Age: 77 Year
  Sex: Female

DRUGS (6)
  1. METHOTREXATE [Suspect]
     Active Substance: METHOTREXATE
     Indication: Eczema
     Dosage: 4 TABLETS OF 2.5 MG ONCE A WEEK
     Dates: start: 20250730, end: 20250730
  2. SOTALOL [Concomitant]
     Active Substance: SOTALOL
     Dosage: TABLET, 80 MG (MILLIGRAM)
  3. APIXABAN [Concomitant]
     Active Substance: APIXABAN
     Dosage: TABLET, 5 MG (MILLIGRAM)
  4. LEVOTHYROXINE [Concomitant]
     Active Substance: LEVOTHYROXINE
     Dosage: TABLET, 112 (MICROGRAM)
  5. POVIDON [Concomitant]
  6. CLOBETASOL [Concomitant]
     Active Substance: CLOBETASOL

REACTIONS (1)
  - Arrhythmia [Not Recovered/Not Resolved]
